FAERS Safety Report 17852453 (Version 1)
Quarter: 2020Q2

REPORT INFORMATION
  Report Type: Spontaneous
  Country: AU (occurrence: AU)
  Receive Date: 20200602
  Receipt Date: 20200602
  Transmission Date: 20200714
  Serious: Yes (Death, Hospitalization)
  Sender: FDA-Public Use
  Company Number: AU-CELGENEUS-AUS-20200600496

PATIENT
  Sex: Male

DRUGS (6)
  1. CYCLOPHOSPHAMIDE. [Concomitant]
     Active Substance: CYCLOPHOSPHAMIDE
     Indication: T-CELL LYMPHOMA
     Route: 065
  2. DOXORUBICIN [Concomitant]
     Active Substance: DOXORUBICIN
     Indication: T-CELL LYMPHOMA
     Route: 065
  3. ROMIDEPSIN. [Suspect]
     Active Substance: ROMIDEPSIN
     Indication: T-CELL LYMPHOMA
     Route: 041
  4. VINCRISTINE [Concomitant]
     Active Substance: VINCRISTINE
     Indication: T-CELL LYMPHOMA
     Route: 065
  5. PREDNISOLONE. [Concomitant]
     Active Substance: PREDNISOLONE
     Indication: T-CELL LYMPHOMA
     Route: 065
  6. PRALATREXATE [Concomitant]
     Active Substance: PRALATREXATE
     Indication: T-CELL LYMPHOMA
     Route: 065

REACTIONS (1)
  - T-cell lymphoma [Fatal]
